FAERS Safety Report 4889613-0 (Version None)
Quarter: 2006Q1

REPORT INFORMATION
  Report Type: 
  Country: None (occurrence: None)
  Receive Date: 20060124
  Receipt Date: 20060105
  Transmission Date: 20060701
  Serious: Yes (Hospitalization)
  Sender: FDA-Public Use
  Company Number: US-GLAXOSMITHKLINE-A0587923A

PATIENT
  Age: 85 Year
  Sex: Female

DRUGS (6)
  1. AVANDIA [Suspect]
     Dosage: 4MG PER DAY
     Route: 048
     Dates: start: 20050901, end: 20051219
  2. GLIPIZIDE [Concomitant]
  3. VITAMIN [Concomitant]
     Dosage: 1TAB PER DAY
  4. ZOCOR [Concomitant]
     Dosage: 40MG PER DAY
  5. DIOVAN [Concomitant]
  6. PROTONIX [Concomitant]

REACTIONS (11)
  - ASTHENIA [None]
  - CARDIAC FAILURE CONGESTIVE [None]
  - EMBOLISM [None]
  - HYPERAESTHESIA [None]
  - ILL-DEFINED DISORDER [None]
  - LETHARGY [None]
  - MUSCLE SPASMS [None]
  - OEDEMA PERIPHERAL [None]
  - PNEUMONIA [None]
  - PRODUCTIVE COUGH [None]
  - SOMNOLENCE [None]
